FAERS Safety Report 25585740 (Version 3)
Quarter: 2025Q3

REPORT INFORMATION
  Report Type: Spontaneous
  Country: AU (occurrence: AU)
  Receive Date: 20250721
  Receipt Date: 20250804
  Transmission Date: 20251021
  Serious: Yes (Other)
  Sender: MYLAN
  Company Number: AU-MYLANLABS-2025M1060758

PATIENT
  Sex: Male
  Weight: 74 kg

DRUGS (68)
  1. CLOZARIL [Suspect]
     Active Substance: CLOZAPINE
     Indication: Schizophrenia
     Dosage: 200 MILLIGRAM, PM (NOCTE)
     Dates: start: 20010709
  2. CLOZARIL [Suspect]
     Active Substance: CLOZAPINE
     Dosage: 200 MILLIGRAM, PM (NOCTE)
     Route: 048
     Dates: start: 20010709
  3. CLOZARIL [Suspect]
     Active Substance: CLOZAPINE
     Dosage: 200 MILLIGRAM, PM (NOCTE)
     Route: 048
     Dates: start: 20010709
  4. CLOZARIL [Suspect]
     Active Substance: CLOZAPINE
     Dosage: 200 MILLIGRAM, PM (NOCTE)
     Dates: start: 20010709
  5. AMLODIPINE [Concomitant]
     Active Substance: AMLODIPINE BESYLATE
     Dosage: 5 MILLIGRAM, AM (MORNING)
  6. AMLODIPINE [Concomitant]
     Active Substance: AMLODIPINE BESYLATE
     Dosage: 5 MILLIGRAM, AM (MORNING)
     Route: 065
  7. AMLODIPINE [Concomitant]
     Active Substance: AMLODIPINE BESYLATE
     Dosage: 5 MILLIGRAM, AM (MORNING)
     Route: 065
  8. AMLODIPINE [Concomitant]
     Active Substance: AMLODIPINE BESYLATE
     Dosage: 5 MILLIGRAM, AM (MORNING)
  9. ASPIRIN [Concomitant]
     Active Substance: ASPIRIN
     Dosage: 100 MILLIGRAM, AM (MORNING)
  10. ASPIRIN [Concomitant]
     Active Substance: ASPIRIN
     Dosage: 100 MILLIGRAM, AM (MORNING)
     Route: 065
  11. ASPIRIN [Concomitant]
     Active Substance: ASPIRIN
     Dosage: 100 MILLIGRAM, AM (MORNING)
     Route: 065
  12. ASPIRIN [Concomitant]
     Active Substance: ASPIRIN
     Dosage: 100 MILLIGRAM, AM (MORNING)
  13. CALCIUM [Concomitant]
     Active Substance: CALCIUM
     Dosage: 1.5 MILLIGRAM, TID (TDS, THREE TIMES A DAY)
  14. CALCIUM [Concomitant]
     Active Substance: CALCIUM
     Dosage: 1.5 MILLIGRAM, TID (TDS, THREE TIMES A DAY)
     Route: 065
  15. CALCIUM [Concomitant]
     Active Substance: CALCIUM
     Dosage: 1.5 MILLIGRAM, TID (TDS, THREE TIMES A DAY)
     Route: 065
  16. CALCIUM [Concomitant]
     Active Substance: CALCIUM
     Dosage: 1.5 MILLIGRAM, TID (TDS, THREE TIMES A DAY)
  17. CHOLECALCIFEROL [Concomitant]
     Active Substance: CHOLECALCIFEROL
     Dosage: 25 MICROGRAM, AM (MORNING)
  18. CHOLECALCIFEROL [Concomitant]
     Active Substance: CHOLECALCIFEROL
     Dosage: 25 MICROGRAM, AM (MORNING)
     Route: 065
  19. CHOLECALCIFEROL [Concomitant]
     Active Substance: CHOLECALCIFEROL
     Dosage: 25 MICROGRAM, AM (MORNING)
     Route: 065
  20. CHOLECALCIFEROL [Concomitant]
     Active Substance: CHOLECALCIFEROL
     Dosage: 25 MICROGRAM, AM (MORNING)
  21. DOCUSATE SODIUM\SENNOSIDE B [Concomitant]
     Active Substance: DOCUSATE SODIUM\SENNOSIDE B
     Dosage: UNK, AM
  22. DOCUSATE SODIUM\SENNOSIDE B [Concomitant]
     Active Substance: DOCUSATE SODIUM\SENNOSIDE B
     Dosage: UNK, AM
     Route: 065
  23. DOCUSATE SODIUM\SENNOSIDE B [Concomitant]
     Active Substance: DOCUSATE SODIUM\SENNOSIDE B
     Dosage: UNK, AM
     Route: 065
  24. DOCUSATE SODIUM\SENNOSIDE B [Concomitant]
     Active Substance: DOCUSATE SODIUM\SENNOSIDE B
     Dosage: UNK, AM
  25. FUROSEMIDE [Concomitant]
     Active Substance: FUROSEMIDE
     Dosage: 250 MILLIGRAM, BID (TWICE A DAY ON NON-DIALYSISI DAYS)
  26. FUROSEMIDE [Concomitant]
     Active Substance: FUROSEMIDE
     Dosage: 250 MILLIGRAM, BID (TWICE A DAY ON NON-DIALYSISI DAYS)
     Route: 065
  27. FUROSEMIDE [Concomitant]
     Active Substance: FUROSEMIDE
     Dosage: 250 MILLIGRAM, BID (TWICE A DAY ON NON-DIALYSISI DAYS)
     Route: 065
  28. FUROSEMIDE [Concomitant]
     Active Substance: FUROSEMIDE
     Dosage: 250 MILLIGRAM, BID (TWICE A DAY ON NON-DIALYSISI DAYS)
  29. HEPARIN [Concomitant]
     Active Substance: HEPARIN SODIUM
     Dosage: 5000 INTERNATIONAL UNIT, BID (TWICE A DAY)
  30. HEPARIN [Concomitant]
     Active Substance: HEPARIN SODIUM
     Dosage: 5000 INTERNATIONAL UNIT, BID (TWICE A DAY)
     Route: 058
  31. HEPARIN [Concomitant]
     Active Substance: HEPARIN SODIUM
     Dosage: 5000 INTERNATIONAL UNIT, BID (TWICE A DAY)
     Route: 058
  32. HEPARIN [Concomitant]
     Active Substance: HEPARIN SODIUM
     Dosage: 5000 INTERNATIONAL UNIT, BID (TWICE A DAY)
  33. LEVETIRACETAM [Concomitant]
     Active Substance: LEVETIRACETAM
     Dosage: 200 MILLIGRAM, PM (NIGHT)
  34. LEVETIRACETAM [Concomitant]
     Active Substance: LEVETIRACETAM
     Dosage: 200 MILLIGRAM, PM (NIGHT)
     Route: 065
  35. LEVETIRACETAM [Concomitant]
     Active Substance: LEVETIRACETAM
     Dosage: 200 MILLIGRAM, PM (NIGHT)
     Route: 065
  36. LEVETIRACETAM [Concomitant]
     Active Substance: LEVETIRACETAM
     Dosage: 200 MILLIGRAM, PM (NIGHT)
  37. MOVICOL [Concomitant]
     Active Substance: POLYETHYLENE GLYCOL 3350\POTASSIUM CHLORIDE\SODIUM BICARBONATE\SODIUM CHLORIDE
     Dosage: UNK, QD  (1-2 SACHETS DAILY, AS REQUIRED)
  38. MOVICOL [Concomitant]
     Active Substance: POLYETHYLENE GLYCOL 3350\POTASSIUM CHLORIDE\SODIUM BICARBONATE\SODIUM CHLORIDE
     Dosage: UNK, QD  (1-2 SACHETS DAILY, AS REQUIRED)
     Route: 065
  39. MOVICOL [Concomitant]
     Active Substance: POLYETHYLENE GLYCOL 3350\POTASSIUM CHLORIDE\SODIUM BICARBONATE\SODIUM CHLORIDE
     Dosage: UNK, QD  (1-2 SACHETS DAILY, AS REQUIRED)
     Route: 065
  40. MOVICOL [Concomitant]
     Active Substance: POLYETHYLENE GLYCOL 3350\POTASSIUM CHLORIDE\SODIUM BICARBONATE\SODIUM CHLORIDE
     Dosage: UNK, QD  (1-2 SACHETS DAILY, AS REQUIRED)
  41. ACETAMINOPHEN [Concomitant]
     Active Substance: ACETAMINOPHEN
     Dosage: 1 GRAM, QID 4 TIMES A DAY AS REQUIRED
  42. ACETAMINOPHEN [Concomitant]
     Active Substance: ACETAMINOPHEN
     Dosage: 1 GRAM, QID 4 TIMES A DAY AS REQUIRED
     Route: 065
  43. ACETAMINOPHEN [Concomitant]
     Active Substance: ACETAMINOPHEN
     Dosage: 1 GRAM, QID 4 TIMES A DAY AS REQUIRED
     Route: 065
  44. ACETAMINOPHEN [Concomitant]
     Active Substance: ACETAMINOPHEN
     Dosage: 1 GRAM, QID 4 TIMES A DAY AS REQUIRED
  45. PRAZOSIN [Concomitant]
     Active Substance: PRAZOSIN
     Dosage: 1 MILLIGRAM, BID (TWICE A DAY)
  46. PRAZOSIN [Concomitant]
     Active Substance: PRAZOSIN
     Dosage: 1 MILLIGRAM, BID (TWICE A DAY)
     Route: 065
  47. PRAZOSIN [Concomitant]
     Active Substance: PRAZOSIN
     Dosage: 1 MILLIGRAM, BID (TWICE A DAY)
     Route: 065
  48. PRAZOSIN [Concomitant]
     Active Substance: PRAZOSIN
     Dosage: 1 MILLIGRAM, BID (TWICE A DAY)
  49. ROSUVASTATIN [Concomitant]
     Active Substance: ROSUVASTATIN
     Dosage: 10 MILLIGRAM, PM (NIGHT)
  50. ROSUVASTATIN [Concomitant]
     Active Substance: ROSUVASTATIN
     Dosage: 10 MILLIGRAM, PM (NIGHT)
     Route: 065
  51. ROSUVASTATIN [Concomitant]
     Active Substance: ROSUVASTATIN
     Dosage: 10 MILLIGRAM, PM (NIGHT)
     Route: 065
  52. ROSUVASTATIN [Concomitant]
     Active Substance: ROSUVASTATIN
     Dosage: 10 MILLIGRAM, PM (NIGHT)
  53. RESONIUM [Concomitant]
     Active Substance: SODIUM POLYSTYRENE SULFONATE
     Dosage: 15 GRAM, QOD MANE EVERY (EVERY MO/WED/FRI)
  54. RESONIUM [Concomitant]
     Active Substance: SODIUM POLYSTYRENE SULFONATE
     Dosage: 15 GRAM, QOD MANE EVERY (EVERY MO/WED/FRI)
     Route: 065
  55. RESONIUM [Concomitant]
     Active Substance: SODIUM POLYSTYRENE SULFONATE
     Dosage: 15 GRAM, QOD MANE EVERY (EVERY MO/WED/FRI)
     Route: 065
  56. RESONIUM [Concomitant]
     Active Substance: SODIUM POLYSTYRENE SULFONATE
     Dosage: 15 GRAM, QOD MANE EVERY (EVERY MO/WED/FRI)
  57. SEVELAMER [Concomitant]
     Active Substance: SEVELAMER
     Dosage: 800 MILLIGRAM, TID (THREE TIMES A DAY)
  58. SEVELAMER [Concomitant]
     Active Substance: SEVELAMER
     Dosage: 800 MILLIGRAM, TID (THREE TIMES A DAY)
     Route: 065
  59. SEVELAMER [Concomitant]
     Active Substance: SEVELAMER
     Dosage: 800 MILLIGRAM, TID (THREE TIMES A DAY)
     Route: 065
  60. SEVELAMER [Concomitant]
     Active Substance: SEVELAMER
     Dosage: 800 MILLIGRAM, TID (THREE TIMES A DAY)
  61. SYMBICORT [Concomitant]
     Active Substance: BUDESONIDE\FORMOTEROL FUMARATE DIHYDRATE
     Dosage: UNK, BID (1-2 PUFFS) TWICE A DAY)
  62. SYMBICORT [Concomitant]
     Active Substance: BUDESONIDE\FORMOTEROL FUMARATE DIHYDRATE
     Dosage: UNK, BID (1-2 PUFFS) TWICE A DAY)
     Route: 065
  63. SYMBICORT [Concomitant]
     Active Substance: BUDESONIDE\FORMOTEROL FUMARATE DIHYDRATE
     Dosage: UNK, BID (1-2 PUFFS) TWICE A DAY)
     Route: 065
  64. SYMBICORT [Concomitant]
     Active Substance: BUDESONIDE\FORMOTEROL FUMARATE DIHYDRATE
     Dosage: UNK, BID (1-2 PUFFS) TWICE A DAY)
  65. TOUJEO [Concomitant]
     Active Substance: INSULIN GLARGINE
  66. TOUJEO [Concomitant]
     Active Substance: INSULIN GLARGINE
     Route: 065
  67. TOUJEO [Concomitant]
     Active Substance: INSULIN GLARGINE
     Route: 065
  68. TOUJEO [Concomitant]
     Active Substance: INSULIN GLARGINE

REACTIONS (2)
  - Chronic kidney disease [Unknown]
  - Arteriogram coronary abnormal [Unknown]
